FAERS Safety Report 14788859 (Version 2)
Quarter: 2018Q2

REPORT INFORMATION
  Report Type: Report from Study
  Country: None (occurrence: US)
  Receive Date: 20180423
  Receipt Date: 20180522
  Transmission Date: 20180711
  Serious: Yes (Other)
  Sender: FDA-Public Use
  Company Number: US-ABBVIE-18K-163-2324617-00

PATIENT
  Age: 46 Year
  Sex: Female

DRUGS (1)
  1. HUMIRA [Suspect]
     Active Substance: ADALIMUMAB
     Indication: PSORIATIC ARTHROPATHY
     Route: 058

REACTIONS (7)
  - Loss of consciousness [Unknown]
  - Arthralgia [Unknown]
  - Fistula [Unknown]
  - Renal failure [Unknown]
  - Weight decreased [Unknown]
  - Blood pressure decreased [Unknown]
  - Hypertension [Unknown]

NARRATIVE: CASE EVENT DATE: 2018
